FAERS Safety Report 9714456 (Version 2)
Quarter: 2013Q4

REPORT INFORMATION
  Report Type: Spontaneous
  Country: GB (occurrence: GB)
  Receive Date: 20131126
  Receipt Date: 20131205
  Transmission Date: 20140711
  Serious: Yes (Life-Threatening, Hospitalization, Other)
  Sender: FDA-Public Use
  Company Number: GB-ACTAVIS-2013-21899

PATIENT
  Age: 21 Year
  Sex: Female

DRUGS (3)
  1. DICLOFENAC (UNKNOWN) [Suspect]
     Indication: PAIN
     Dosage: 100 MG, UNKNOWN
     Route: 054
     Dates: start: 20131001, end: 20131001
  2. MIFEPRISTONE [Suspect]
     Indication: ABORTION
     Dosage: 200 MG, UNKNOWN
     Route: 048
     Dates: start: 20130928, end: 20130928
  3. MISOPROSTOL [Suspect]
     Indication: ABORTION
     Dosage: 800 ?G, UNKNOWN
     Route: 067
     Dates: start: 20131001, end: 20131001

REACTIONS (6)
  - Anaphylactic reaction [Recovered/Resolved]
  - Circulatory collapse [Unknown]
  - Pharyngeal oedema [Unknown]
  - Rash [Unknown]
  - Pruritus [Unknown]
  - Pregnancy [Unknown]
